FAERS Safety Report 9568936 (Version 2)
Quarter: 2013Q3

REPORT INFORMATION
  Report Type: Spontaneous
  Country: US (occurrence: US)
  Receive Date: 20130930
  Receipt Date: 20130930
  Transmission Date: 20140515
  Serious: No
  Sender: FDA-Public Use
  Company Number: US-AMGEN-USASP2013042509

PATIENT
  Age: 66 Year
  Sex: Female

DRUGS (2)
  1. ENBREL [Suspect]
     Indication: RHEUMATOID ARTHRITIS
     Dosage: 0.50 MG, QWK
     Route: 065
     Dates: start: 20130606
  2. METHOTREXATE [Concomitant]
     Dosage: 10 MG, QWK
     Dates: start: 201305

REACTIONS (7)
  - Arthralgia [Recovered/Resolved]
  - Nerve compression [Not Recovered/Not Resolved]
  - Muscular weakness [Unknown]
  - Blood test abnormal [Not Recovered/Not Resolved]
  - Psychomotor hyperactivity [Not Recovered/Not Resolved]
  - Injection site bruising [Recovered/Resolved]
  - Injection site pain [Recovered/Resolved]
